FAERS Safety Report 7046093-7 (Version None)
Quarter: 2010Q4

REPORT INFORMATION
  Report Type: 
  Country: None (occurrence: None)
  Receive Date: 20101014
  Receipt Date: 20101006
  Transmission Date: 20110411
  Serious: Yes (Other)
  Sender: FDA-Public Use
  Company Number: CHPA2010US15896

PATIENT
  Sex: Female

DRUGS (2)
  1. EXCEDRIN (MIGRAINE) [Suspect]
     Indication: MIGRAINE
     Dosage: 2 CAPLETS ONCE A DAY
     Route: 048
     Dates: start: 20101006, end: 20101006
  2. DIVALPROEX SODIUM [Suspect]

REACTIONS (2)
  - HEADACHE [None]
  - NAUSEA [None]
